FAERS Safety Report 19392545 (Version 2)
Quarter: 2021Q4

REPORT INFORMATION
  Report Type: Report from Study
  Country: DE (occurrence: DE)
  Receive Date: 20210608
  Receipt Date: 20211202
  Transmission Date: 20220304
  Serious: Yes (Hospitalization)
  Sender: FDA-Public Use
  Company Number: DE-ABBVIE-21K-062-3935471-00

PATIENT
  Age: 46 Year
  Sex: Male

DRUGS (11)
  1. HUMIRA [Suspect]
     Active Substance: ADALIMUMAB
     Indication: Axial spondyloarthritis
     Route: 058
     Dates: start: 20180702
  2. NAPROXEN [Concomitant]
     Active Substance: NAPROXEN
     Indication: Product used for unknown indication
     Dates: start: 20191104, end: 20191106
  3. NAPROXEN [Concomitant]
     Active Substance: NAPROXEN
     Dates: start: 20200915, end: 20201015
  4. ETORICOXIB [Concomitant]
     Active Substance: ETORICOXIB
     Indication: Product used for unknown indication
     Dates: start: 20180901, end: 20181116
  5. ETORICOXIB [Concomitant]
     Active Substance: ETORICOXIB
     Dates: start: 20190209, end: 20200914
  6. ETORICOXIB [Concomitant]
     Active Substance: ETORICOXIB
     Dates: start: 20210515
  7. SULFASALAZINE DELAYED-RELEASE [Concomitant]
     Active Substance: SULFASALAZINE
     Indication: Product used for unknown indication
     Dosage: STOP DATE WAS BETWEEN 25 OCT 2008 TO 23 NOV 2019
     Dates: start: 20080101
  8. SULFASALAZINE DELAYED-RELEASE [Concomitant]
     Active Substance: SULFASALAZINE
     Dosage: START DATE BETWEEN 25 OCT 2008 TO 23 NOV 2019?STOP DATE BETWEEN 29 JUN 2020 TO 15 NOV 2020
  9. SULFASALAZINE DELAYED-RELEASE [Concomitant]
     Active Substance: SULFASALAZINE
     Dates: start: 20201115, end: 20201215
  10. ACEMETACIN [Concomitant]
     Active Substance: ACEMETACIN
     Indication: Product used for unknown indication
     Dates: start: 20160801, end: 20180801
  11. CELECOXIB [Concomitant]
     Active Substance: CELECOXIB
     Indication: Product used for unknown indication
     Dates: start: 20181116, end: 20190208

REACTIONS (2)
  - Spinal osteoarthritis [Unknown]
  - Osteoarthritis [Unknown]

NARRATIVE: CASE EVENT DATE: 20200909
